FAERS Safety Report 15346850 (Version 1)
Quarter: 2018Q3

REPORT INFORMATION
  Report Type: Spontaneous
  Country: US (occurrence: US)
  Receive Date: 20180830
  Receipt Date: 20180830
  Transmission Date: 20181010
  Serious: Yes (Death, Life-Threatening)
  Sender: FDA-Public Use
  Company Number: None

PATIENT
  Age: 33 Year
  Sex: Male
  Weight: 112.5 kg

DRUGS (3)
  1. KRATOM [Suspect]
     Active Substance: MITRAGYNINE\HERBALS
     Indication: DRUG DEPENDENCE
     Dosage: ?          OTHER FREQUENCY:DOES NOT SAY;OTHER ROUTE:DOES NOT SAY?
     Dates: start: 20180515, end: 20180814
  2. AMITRIPTYLINE [Concomitant]
     Active Substance: AMITRIPTYLINE
  3. LASIX [Concomitant]
     Active Substance: FUROSEMIDE

REACTIONS (2)
  - Circulatory collapse [None]
  - Fall [None]

NARRATIVE: CASE EVENT DATE: 20180814
